FAERS Safety Report 18510871 (Version 1)
Quarter: 2020Q4

REPORT INFORMATION
  Report Type: Spontaneous
  Country: US (occurrence: US)
  Receive Date: 20201114
  Receipt Date: 20201114
  Transmission Date: 20210114
  Serious: No
  Sender: FDA-Public Use
  Company Number: None

PATIENT
  Age: 72 Year
  Sex: Female

DRUGS (1)
  1. REVLIMID [Suspect]
     Active Substance: LENALIDOMIDE
     Indication: PLASMA CELL MYELOMA
     Route: 048
     Dates: start: 20201103

REACTIONS (5)
  - Arthralgia [None]
  - Accidental overdose [None]
  - Ear pruritus [None]
  - Wrong schedule [None]
  - Fatigue [None]

NARRATIVE: CASE EVENT DATE: 20201108
